FAERS Safety Report 6087134-3 (Version None)
Quarter: 2009Q1

REPORT INFORMATION
  Report Type: 
  Country: None (occurrence: None)
  Receive Date: 20090223
  Receipt Date: 20081205
  Transmission Date: 20090719
  Serious: Yes (Hospitalization)
  Sender: FDA-Public Use
  Company Number: US-JNJFOC-20080702664

PATIENT
  Sex: Female
  Weight: 63.5 kg

DRUGS (19)
  1. REMICADE [Suspect]
     Route: 042
  2. REMICADE [Suspect]
     Indication: CROHN'S DISEASE
     Dosage: DOSE OF 3 VIALS; DOSE GIVEN ON 23-MAY-2008
     Route: 042
  3. ASACOL [Concomitant]
     Indication: CROHN'S DISEASE
     Route: 048
  4. IMURAN [Concomitant]
     Route: 048
  5. IMURAN [Concomitant]
     Indication: CROHN'S DISEASE
     Route: 048
  6. ACTONEL [Concomitant]
  7. CENTRUM SILVER [Concomitant]
  8. AXERT [Concomitant]
  9. CITALOPRAM HYDROBROMIDE [Concomitant]
  10. FISH OIL [Concomitant]
  11. ACETAMINOPHEN AND HYDROCODONE BITARTRATE [Concomitant]
  12. LUNESTA [Concomitant]
  13. LYRICA [Concomitant]
  14. NORTRIPTYLINE HCL [Concomitant]
  15. PRAVASTATIN [Concomitant]
  16. PREVACID [Concomitant]
  17. PROMETHAZINE [Concomitant]
  18. VERAPAMIL [Concomitant]
  19. ZONISAMIDE [Concomitant]

REACTIONS (13)
  - ALOPECIA [None]
  - ANOREXIA [None]
  - BENIGN NEOPLASM OF THYROID GLAND [None]
  - CONSTIPATION [None]
  - INFUSION RELATED REACTION [None]
  - MIGRAINE [None]
  - NAUSEA [None]
  - PETECHIAE [None]
  - PNEUMONIA [None]
  - SWELLING [None]
  - URINARY TRACT DISORDER [None]
  - WEIGHT INCREASED [None]
  - WHITE BLOOD CELL DISORDER [None]
